FAERS Safety Report 25322732 (Version 1)
Quarter: 2025Q2

REPORT INFORMATION
  Report Type: Report from Study
  Country: CN (occurrence: CN)
  Receive Date: 20250516
  Receipt Date: 20250516
  Transmission Date: 20250717
  Serious: Yes (Other)
  Sender: ROCHE
  Company Number: CN-ROCHE-10000280255

PATIENT

DRUGS (12)
  1. TRASTUZUMAB [Suspect]
     Active Substance: TRASTUZUMAB
     Indication: HER2 positive gastric cancer
     Dosage: INITIALLY AT 8 MG/KG THEN 6 MG/KG OF BODY WEIGHT EVERY 21 DAYS INTRAVENOUSLY
     Route: 042
  2. TRASTUZUMAB [Suspect]
     Active Substance: TRASTUZUMAB
     Dosage: INITIALLY AT 8 MG/KG THEN 6 MG/KG OF BODY WEIGHT EVERY 21 DAYS INTRAVENOUSLY
     Route: 042
  3. CAPECITABINE [Suspect]
     Active Substance: CAPECITABINE
     Indication: HER2 positive gastric cancer
     Route: 065
  4. OXALIPLATIN [Suspect]
     Active Substance: OXALIPLATIN
     Indication: HER2 positive gastric cancer
     Route: 065
  5. PACLITAXEL [Suspect]
     Active Substance: PACLITAXEL
     Indication: HER2 positive gastric cancer
     Route: 065
  6. KEYTRUDA [Suspect]
     Active Substance: PEMBROLIZUMAB
     Indication: HER2 positive gastric cancer
     Route: 065
  7. NIVOLUMAB [Suspect]
     Active Substance: NIVOLUMAB
     Indication: HER2 positive gastric cancer
     Route: 065
  8. TORIPALIMAB [Suspect]
     Active Substance: TORIPALIMAB
     Indication: HER2 positive gastric cancer
     Route: 065
  9. TISLELIZUMAB [Suspect]
     Active Substance: TISLELIZUMAB
     Indication: HER2 positive gastric cancer
     Route: 065
  10. SINTILIMAB [Suspect]
     Active Substance: SINTILIMAB
     Indication: HER2 positive gastric cancer
     Route: 065
  11. CAMRELIZUMAB [Suspect]
     Active Substance: CAMRELIZUMAB
     Indication: HER2 positive gastric cancer
     Route: 065
  12. PENPULIMAB [Suspect]
     Active Substance: PENPULIMAB
     Indication: HER2 positive gastric cancer
     Route: 065

REACTIONS (9)
  - Leukopenia [Unknown]
  - Thrombocytopenia [Unknown]
  - Diarrhoea [Unknown]
  - Neurotoxicity [Unknown]
  - Cardiac failure [Unknown]
  - Anaemia [Unknown]
  - Vomiting [Unknown]
  - Hepatic function abnormal [Unknown]
  - Palmar-plantar erythrodysaesthesia syndrome [Unknown]
